FAERS Safety Report 5598951-8 (Version None)
Quarter: 2008Q1

REPORT INFORMATION
  Report Type: 
  Country: None (occurrence: None)
  Receive Date: 20080122
  Receipt Date: 20080111
  Transmission Date: 20080703
  Serious: Yes (Other)
  Sender: FDA-Public Use
  Company Number: JP-ROCHE-541630

PATIENT
  Age: 22 Year

DRUGS (2)
  1. TAMIFLU [Suspect]
     Indication: INFLUENZA
     Route: 048
     Dates: start: 20080109
  2. CLARITHROMYCIN [Concomitant]
     Route: 048

REACTIONS (1)
  - HYPOTHERMIA [None]
